FAERS Safety Report 7553568-0 (Version None)
Quarter: 2011Q2

REPORT INFORMATION
  Report Type: 
  Country: None (occurrence: None)
  Receive Date: 20110614
  Receipt Date: 20110614
  Transmission Date: 20111010
  Serious: No
  Sender: FDA-Public Use
  Company Number: None

PATIENT
  Age: 60 Year
  Sex: Male
  Weight: 74.8435 kg

DRUGS (1)
  1. PROSCAR [Suspect]
     Indication: PROSTATOMEGALY
     Dosage: 5 MG  DAILY PO
     Route: 048
     Dates: start: 20000101, end: 20110611

REACTIONS (2)
  - PROSTATOMEGALY [None]
  - ERECTILE DYSFUNCTION [None]
